FAERS Safety Report 12818742 (Version 1)
Quarter: 2016Q4

REPORT INFORMATION
  Report Type: Spontaneous
  Country: US (occurrence: US)
  Receive Date: 20161006
  Receipt Date: 20161006
  Transmission Date: 20170207
  Serious: Yes (Life-Threatening, Hospitalization, Disabling)
  Sender: FDA-Public Use
  Company Number: None

PATIENT
  Age: 24 Year
  Sex: Male
  Weight: 74.25 kg

DRUGS (3)
  1. VSL #3 PROBIOTICS [Concomitant]
  2. MAGNESIUM [Concomitant]
     Active Substance: MAGNESIUM
  3. LEVOFLOXACIN. [Suspect]
     Active Substance: LEVOFLOXACIN
     Indication: INFECTION
     Dosage: ?          QUANTITY:7 TABLET(S);?
     Route: 048
     Dates: start: 20160714, end: 20160720

REACTIONS (18)
  - Headache [None]
  - Asthenia [None]
  - Joint crepitation [None]
  - Weight decreased [None]
  - Vomiting [None]
  - Hyperhidrosis [None]
  - Mouth swelling [None]
  - Dry mouth [None]
  - Hypoaesthesia [None]
  - Feeling abnormal [None]
  - Dysgeusia [None]
  - Muscle twitching [None]
  - Dyspepsia [None]
  - Arthropathy [None]
  - Decreased appetite [None]
  - Anxiety [None]
  - Suicidal ideation [None]
  - Nausea [None]

NARRATIVE: CASE EVENT DATE: 20160714
